FAERS Safety Report 23067276 (Version 2)
Quarter: 2023Q4

REPORT INFORMATION
  Report Type: Report from Study
  Country: US (occurrence: US)
  Receive Date: 20231016
  Receipt Date: 20231018
  Transmission Date: 20240109
  Serious: No
  Sender: FDA-Public Use
  Company Number: US-002147023-NVSC2023US216127

PATIENT
  Sex: Male

DRUGS (3)
  1. TRIAMCINOLONE [Suspect]
     Active Substance: TRIAMCINOLONE
     Indication: Psoriasis
     Dosage: UNK
     Route: 065
  2. DICLOFENAC SODIUM [Suspect]
     Active Substance: DICLOFENAC\DICLOFENAC SODIUM
     Indication: Psoriasis
     Route: 065
  3. COSENTYX [Suspect]
     Active Substance: SECUKINUMAB
     Indication: Product used for unknown indication
     Route: 065

REACTIONS (10)
  - Peripheral swelling [Unknown]
  - Skin exfoliation [Unknown]
  - Rash erythematous [Unknown]
  - Musculoskeletal stiffness [Unknown]
  - Rash [Unknown]
  - Rash pruritic [Unknown]
  - Arthralgia [Unknown]
  - Drug ineffective [Unknown]
  - Arthritis [Unknown]
  - Off label use [Unknown]
